FAERS Safety Report 14848101 (Version 5)
Quarter: 2018Q3

REPORT INFORMATION
  Report Type: Report from Study
  Country: US (occurrence: US)
  Receive Date: 20180504
  Receipt Date: 20180918
  Transmission Date: 20181010
  Serious: Yes (Hospitalization)
  Sender: FDA-Public Use
  Company Number: US-B.I. PHARMACEUTICALS,INC./RIDGEFIELD-2018-BI-023899

PATIENT
  Age: 69 Year
  Sex: Male
  Weight: 85.8 kg

DRUGS (4)
  1. FLUTICASONE. [Concomitant]
     Active Substance: FLUTICASONE
     Indication: RHINITIS ALLERGIC
     Dosage: FORMULATION: NASAL SPRAY
     Route: 065
  2. PROAIR HFA [Concomitant]
     Active Substance: ALBUTEROL SULFATE
     Indication: ASTHMA
     Route: 065
  3. OFEV [Suspect]
     Active Substance: NINTEDANIB
     Indication: IDIOPATHIC PULMONARY FIBROSIS
     Route: 048
     Dates: start: 20180510
  4. SYMBICORT [Concomitant]
     Active Substance: BUDESONIDE\FORMOTEROL FUMARATE DIHYDRATE
     Indication: ASTHMA
     Dosage: FORMULATION: HYDROFLUOROALKANE (HFA)?UNIT DOSE: 160/40
     Route: 065

REACTIONS (9)
  - Diarrhoea [Unknown]
  - Fall [Unknown]
  - Facial bones fracture [Unknown]
  - Asthma [Recovered/Resolved]
  - Increased tendency to bruise [Unknown]
  - Dizziness [Unknown]
  - Haemorrhage [Recovered/Resolved]
  - Cough [Unknown]
  - Liver function test abnormal [Unknown]

NARRATIVE: CASE EVENT DATE: 20180424
